FAERS Safety Report 19320217 (Version 2)
Quarter: 2021Q2

REPORT INFORMATION
  Report Type: Report from Study
  Country: FR (occurrence: FR)
  Receive Date: 20210527
  Receipt Date: 20210614
  Transmission Date: 20210717
  Serious: Yes (Hospitalization, Other)
  Sender: FDA-Public Use
  Company Number: FR-BRISTOL-MYERS SQUIBB COMPANY-BMS-2021-049333

PATIENT
  Age: 69 Year
  Sex: Female
  Weight: 47.5 kg

DRUGS (15)
  1. LOVENOX [Concomitant]
     Active Substance: ENOXAPARIN SODIUM
     Indication: ANTICOAGULANT THERAPY
     Dosage: 0.4X2 PER DAY
     Route: 065
  2. ROVAMYCINE [SPIRAMYCIN] [Concomitant]
     Active Substance: SPIRAMYCIN
     Indication: PNEUMONIA
     Dosage: UNK
     Route: 065
     Dates: end: 20210511
  3. GLUCOSE [Concomitant]
     Active Substance: DEXTROSE
     Indication: PRODUCT USED FOR UNKNOWN INDICATION
     Dosage: 1000 MILLILITER
     Route: 065
  4. NIVOLUMAB [Suspect]
     Active Substance: NIVOLUMAB
     Indication: HEAD AND NECK CANCER
     Dosage: 240 MILLIGRAM, Q2WK
     Route: 042
     Dates: start: 20210201, end: 20210402
  5. TRAMADOL HYDROCHLORIDE. [Concomitant]
     Active Substance: TRAMADOL HYDROCHLORIDE
     Indication: PAIN
     Dosage: 100 MILLIGRAM, BID
     Route: 065
  6. NORMACOL [STERCULIA URENS GUM] [Concomitant]
     Indication: FAECALOMA
     Dosage: UNK
     Route: 065
  7. ZAMUDOL [Concomitant]
     Active Substance: TRAMADOL HYDROCHLORIDE
     Indication: PRODUCT USED FOR UNKNOWN INDICATION
     Dosage: 100 MILLIGRAM
     Route: 065
  8. ZOPICLONE [Concomitant]
     Active Substance: ZOPICLONE
     Indication: PRODUCT USED FOR UNKNOWN INDICATION
     Dosage: 7.5 MILLIGRAM
     Route: 065
  9. FORLAX [MACROGOL 4000] [Concomitant]
     Active Substance: POLYETHYLENE GLYCOL 4000
     Indication: PRODUCT USED FOR UNKNOWN INDICATION
  10. METOCLOPRAMIDE HYDROCHLORIDE. [Concomitant]
     Active Substance: METOCLOPRAMIDE HYDROCHLORIDE
     Indication: PRODUCT USED FOR UNKNOWN INDICATION
     Dosage: 10 MILLIGRAM
     Route: 065
  11. NEFOPAM HYDROCHLORIDE [Concomitant]
     Active Substance: NEFOPAM HYDROCHLORIDE
     Indication: PRODUCT USED FOR UNKNOWN INDICATION
     Dosage: 20 MILLIGRAM
     Route: 065
  12. MOVICOL [MACROGOL 4000;POTASSIUM CHLORIDE;SODIUM BICARBONATE;SODIUM CH [Concomitant]
     Indication: CONSTIPATION
     Dosage: 1?3/DAY
     Route: 065
  13. POLYIONIQUE FORMULE 1A G5 [Concomitant]
     Active Substance: DEXTROSE\POTASSIUM CHLORIDE\SODIUM CHLORIDE
     Indication: PRODUCT USED FOR UNKNOWN INDICATION
     Dosage: UNK
     Route: 065
  14. TAXOL [Suspect]
     Active Substance: PACLITAXEL
     Indication: HEAD AND NECK CANCER
     Dosage: DAY 1, 8 AND 15
     Route: 065
     Dates: start: 20210420, end: 20210504
  15. POTASSIUM CHLORIDE. [Concomitant]
     Active Substance: POTASSIUM CHLORIDE
     Indication: PRODUCT USED FOR UNKNOWN INDICATION
     Dosage: 1 GRAM
     Route: 042
     Dates: start: 20210509

REACTIONS (22)
  - Decreased appetite [Unknown]
  - Mucosal inflammation [Unknown]
  - Sepsis [Unknown]
  - Rhabdomyolysis [Unknown]
  - Asthenia [Unknown]
  - Pain [Unknown]
  - Pulmonary embolism [Unknown]
  - Malignant neoplasm progression [Unknown]
  - Confusional state [Recovering/Resolving]
  - Neck pain [Recovered/Resolved]
  - General physical condition abnormal [Not Recovered/Not Resolved]
  - Malnutrition [Not Recovered/Not Resolved]
  - Hepatic cytolysis [Unknown]
  - Hypophosphataemia [Unknown]
  - Tachycardia [Unknown]
  - Arthralgia [Recovered/Resolved]
  - Pneumonia klebsiella [Recovering/Resolving]
  - Fall [Unknown]
  - Hypokalaemia [Unknown]
  - Dry mouth [Unknown]
  - Nausea [Unknown]
  - Livedo reticularis [Unknown]

NARRATIVE: CASE EVENT DATE: 202105
